FAERS Safety Report 7708524 (Version 2)
Quarter: 2014Q2

REPORT INFORMATION
  Report Type: Report from Study
  Country: US (occurrence: US)
  Receive Date: 20101214
  Receipt Date: 20140418
  Transmission Date: 20141212
  Serious: No
  Sender: FDA-Public Use
  Company Number: US-ASTRAZENECA-2010SE19412

PATIENT
  Age: 62 Year
  Sex: Female
  Weight: 81.6 kg

DRUGS (1)
  1. CRESTOR [Suspect]
     Indication: BLOOD CHOLESTEROL ABNORMAL
     Route: 048
     Dates: start: 2009

REACTIONS (6)
  - Feeling abnormal [Unknown]
  - Nervousness [Unknown]
  - Tremor [Unknown]
  - Urticaria [Unknown]
  - Low density lipoprotein increased [Not Recovered/Not Resolved]
  - Drug dose omission [Not Recovered/Not Resolved]
